FAERS Safety Report 18100284 (Version 2)
Quarter: 2020Q3

REPORT INFORMATION
  Report Type: Report from Study
  Country: PA (occurrence: PA)
  Receive Date: 20200731
  Receipt Date: 20200817
  Transmission Date: 20201103
  Serious: Yes (Death, Hospitalization, Other)
  Sender: FDA-Public Use
  Company Number: PA-INCYTE CORPORATION-2020IN007266

PATIENT

DRUGS (1)
  1. JAKAVI [Suspect]
     Active Substance: RUXOLITINIB
     Indication: CHRONIC MYELOID LEUKAEMIA
     Dosage: 5 MG
     Route: 065
     Dates: start: 2015, end: 201910

REACTIONS (7)
  - Abscess [Recovered/Resolved]
  - Product availability issue [Unknown]
  - Asthenia [Unknown]
  - Malaise [Unknown]
  - Diabetes mellitus [Unknown]
  - Myocardial infarction [Fatal]
  - Product use in unapproved indication [Unknown]

NARRATIVE: CASE EVENT DATE: 2017
